FAERS Safety Report 25258378 (Version 1)
Quarter: 2025Q2

REPORT INFORMATION
  Report Type: Spontaneous
  Country: FR (occurrence: FR)
  Receive Date: 20250501
  Receipt Date: 20250501
  Transmission Date: 20250717
  Serious: Yes (Other)
  Sender: AUROBINDO
  Company Number: FR-AFSSAPS-ST2025000397

PATIENT
  Age: 19 Year
  Sex: Female

DRUGS (1)
  1. AMOXICILLIN [Suspect]
     Active Substance: AMOXICILLIN
     Indication: Tonsillitis streptococcal
     Dosage: 2 GRAM, ONCE A DAY
     Route: 048
     Dates: start: 20240929, end: 20241006

REACTIONS (3)
  - Rash maculo-papular [Recovered/Resolved]
  - Hepatic cytolysis [Recovered/Resolved]
  - Eosinophilia [Recovered/Resolved]

NARRATIVE: CASE EVENT DATE: 20241006
